FAERS Safety Report 23162565 (Version 1)
Quarter: 2023Q4

REPORT INFORMATION
  Report Type: Report from Study
  Country: MX (occurrence: MX)
  Receive Date: 20231109
  Receipt Date: 20231109
  Transmission Date: 20240110
  Serious: Yes (Other)
  Sender: FDA-Public Use
  Company Number: MX-002147023-NVSC2023MX238828

PATIENT
  Age: 25 Year
  Sex: Male

DRUGS (2)
  1. ELTROMBOPAG OLAMINE [Suspect]
     Active Substance: ELTROMBOPAG OLAMINE
     Indication: Thrombocytopenic purpura
     Dosage: 1 DOSAGE FORM, QD (50 MG)
     Route: 048
     Dates: start: 201402, end: 201403
  2. ELTROMBOPAG OLAMINE [Suspect]
     Active Substance: ELTROMBOPAG OLAMINE
     Dosage: 1 DOSAGE FORM, QD (25 MG)
     Route: 048
     Dates: start: 201403, end: 201803

REACTIONS (3)
  - Platelet count decreased [Unknown]
  - Disease recurrence [Not Recovered/Not Resolved]
  - Influenza [Unknown]

NARRATIVE: CASE EVENT DATE: 20231106
